FAERS Safety Report 5921030-4 (Version None)
Quarter: 2008Q4

REPORT INFORMATION
  Report Type: 
  Country: None (occurrence: None)
  Receive Date: 20081016
  Receipt Date: 20081006
  Transmission Date: 20090506
  Serious: Yes (Hospitalization)
  Sender: FDA-Public Use
  Company Number: JP-ALLERGAN-0813004US

PATIENT
  Age: 73 Year
  Sex: Female

DRUGS (1)
  1. BRIMONIDINE 0.1% SOL W/ PURITE [Suspect]
     Indication: OCULAR HYPERTENSION
     Dosage: UNK, BID
     Route: 047
     Dates: start: 20071015, end: 20081001

REACTIONS (1)
  - LOSS OF CONSCIOUSNESS [None]
